FAERS Safety Report 14603634 (Version 1)
Quarter: 2018Q1

REPORT INFORMATION
  Report Type: Spontaneous
  Country: US (occurrence: US)
  Receive Date: 20180305
  Receipt Date: 20180305
  Transmission Date: 20180509
  Serious: Yes (Life-Threatening)
  Sender: FDA-Public Use
  Company Number: None

PATIENT
  Age: 17 Year
  Sex: Female
  Weight: 65.25 kg

DRUGS (4)
  1. MIDOL COMPLETE [Suspect]
     Active Substance: ACETAMINOPHEN\CAFFEINE\PYRILAMINE MALEATE
     Indication: MENSTRUAL DISCOMFORT
     Dosage: ?          QUANTITY:16 CAPSULE(S);?
     Route: 048
     Dates: start: 20180115, end: 20180116
  2. STEROIDS [Concomitant]
     Active Substance: UNSPECIFIED INGREDIENT
  3. ANTIBIOTIC [Concomitant]
     Active Substance: UNSPECIFIED INGREDIENT
  4. STEROID CREAM [Concomitant]
     Active Substance: UNSPECIFIED INGREDIENT

REACTIONS (3)
  - Stevens-Johnson syndrome [None]
  - Pneumonia [None]
  - Staphylococcal infection [None]

NARRATIVE: CASE EVENT DATE: 20180119
